FAERS Safety Report 9770799 (Version 2)
Quarter: 2013Q4

REPORT INFORMATION
  Report Type: Spontaneous
  Country: US (occurrence: US)
  Receive Date: 20131218
  Receipt Date: 20131218
  Transmission Date: 20140711
  Serious: Yes (Other)
  Sender: FDA-Public Use
  Company Number: US-SHIRE-ALL1-2013-07809

PATIENT
  Age: 22 Year
  Sex: Female
  Weight: 86.17 kg

DRUGS (3)
  1. VYVANSE [Suspect]
     Indication: ATTENTION DEFICIT/HYPERACTIVITY DISORDER
     Dosage: 60 MG, 1X/DAY:QD
     Route: 048
     Dates: start: 2001, end: 20131107
  2. VYVANSE [Suspect]
     Dosage: 30 MG, UNKNOWN
     Route: 048
  3. VYVANSE [Suspect]
     Dosage: 60 MG, 1X/DAY:QD
     Route: 048
     Dates: start: 201311

REACTIONS (10)
  - Drug withdrawal syndrome [Recovered/Resolved]
  - Malaise [Not Recovered/Not Resolved]
  - Performance status decreased [Not Recovered/Not Resolved]
  - Disturbance in attention [Not Recovered/Not Resolved]
  - Dysphonia [Not Recovered/Not Resolved]
  - Apathy [Not Recovered/Not Resolved]
  - Therapy cessation [Recovered/Resolved]
  - Drug dose omission [Recovered/Resolved]
  - Dizziness [Not Recovered/Not Resolved]
  - Nausea [Not Recovered/Not Resolved]
